FAERS Safety Report 4320020-5 (Version None)
Quarter: 2004Q1

REPORT INFORMATION
  Report Type: 
  Country: None (occurrence: None)
  Receive Date: 20040319
  Receipt Date: 20030407
  Transmission Date: 20041129
  Serious: Yes (Death, Hospitalization)
  Sender: FDA-Public Use
  Company Number: WAES 0304USA00759

PATIENT
  Age: 95 Year
  Sex: Female
  Weight: 41 kg

DRUGS (3)
  1. PEPCID [Concomitant]
     Route: 048
  2. IRON (UNSPECIFIED) [Concomitant]
  3. VIOXX [Suspect]
     Indication: OSTEOARTHRITIS
     Route: 048
     Dates: end: 20010816

REACTIONS (8)
  - CEREBROVASCULAR ACCIDENT [None]
  - DRUG INEFFECTIVE [None]
  - HEADACHE [None]
  - HIP FRACTURE [None]
  - INJURY [None]
  - OEDEMA PERIPHERAL [None]
  - SKIN CANCER [None]
  - SKIN GRAFT [None]
